FAERS Safety Report 14790867 (Version 1)
Quarter: 2018Q2

REPORT INFORMATION
  Report Type: Spontaneous
  Country: US (occurrence: US)
  Receive Date: 20180413
  Receipt Date: 20180413
  Transmission Date: 20180711
  Serious: No
  Sender: FDA-Public Use
  Company Number: None

PATIENT
  Age: 74 Year
  Sex: Male
  Weight: 48.08 kg

DRUGS (1)
  1. PROLIA [Suspect]
     Active Substance: DENOSUMAB
     Indication: SENILE OSTEOPOROSIS
     Route: 058
     Dates: start: 20170220

REACTIONS (7)
  - Hypoaesthesia [None]
  - Pruritus generalised [None]
  - Amnesia [None]
  - Burning sensation [None]
  - Memory impairment [None]
  - Paraesthesia [None]
  - Arthralgia [None]

NARRATIVE: CASE EVENT DATE: 20180223
